FAERS Safety Report 23036601 (Version 3)
Quarter: 2023Q4

REPORT INFORMATION
  Report Type: Report from Study
  Country: US (occurrence: None)
  Receive Date: 20231006
  Receipt Date: 20231020
  Transmission Date: 20240110
  Serious: Yes (Life-Threatening, Hospitalization)
  Sender: FDA-Public Use
  Company Number: US-ROCHE-3433662

PATIENT
  Age: 81 Year
  Sex: Male
  Weight: 73.9 kg

DRUGS (6)
  1. ATEZOLIZUMAB [Suspect]
     Active Substance: ATEZOLIZUMAB
     Indication: Bladder cancer
     Dosage: ON 15/SEP/2023 PATIENT RECEIVED MOST RECENT DOSE OF ATEZOLIZUMAB PRIOR TO AE
     Route: 041
     Dates: start: 20230804
  2. CABOZANTINIB [Suspect]
     Active Substance: CABOZANTINIB
     Indication: Bladder cancer
     Dosage: ON 25/SEP/2023 PATIENT RECEIVED MOST RECENT DOSE OF CABOZANITINIB PRIOR TO AE
     Route: 048
     Dates: start: 20230804, end: 20230925
  3. FENTANYL [Concomitant]
     Active Substance: FENTANYL
     Dosage: 25-100 MCG
     Dates: start: 20230925, end: 20230926
  4. DILAUDID [Concomitant]
     Active Substance: HYDROMORPHONE HYDROCHLORIDE
     Dosage: 0.2-0.4 MCG
     Dates: start: 20230926
  5. LOVENOX [Concomitant]
     Active Substance: ENOXAPARIN SODIUM
     Indication: Pulmonary embolism
     Dates: start: 20221013
  6. METOPROLOL [Concomitant]
     Active Substance: METOPROLOL
     Dosage: HEART RATE CONTROL
     Dates: start: 20231013

REACTIONS (3)
  - Sepsis [Not Recovered/Not Resolved]
  - Large intestine perforation [Not Recovered/Not Resolved]
  - Respiratory failure [Not Recovered/Not Resolved]

NARRATIVE: CASE EVENT DATE: 20230925
